FAERS Safety Report 12903744 (Version 1)
Quarter: 2016Q4

REPORT INFORMATION
  Report Type: Spontaneous
  Country: HK (occurrence: HK)
  Receive Date: 20161102
  Receipt Date: 20161102
  Transmission Date: 20170207
  Serious: Yes (Hospitalization)
  Sender: FDA-Public Use
  Company Number: HK-CORDEN PHARMA LATINA S.P.A.-HK-2016COR000230

PATIENT

DRUGS (4)
  1. CISPLATIN. [Suspect]
     Active Substance: CISPLATIN
     Indication: GERM CELL NEOPLASM
     Dosage: 20 MG/M2, ON DAY 1-5
  2. BLEOMYCIN [Suspect]
     Active Substance: BLEOMYCIN SULFATE
     Indication: GERM CELL NEOPLASM
     Dosage: 30 MG, ON DAY 2, 6, 16 ON 3-WEEK CYCLE
  3. ETOPOSIDE. [Suspect]
     Active Substance: ETOPOSIDE
     Indication: GERM CELL NEOPLASM
     Dosage: 100 MG/M2, ON DAY 1-5
  4. GRANULOCYTE COLONY STIMULATING FACTOR [Concomitant]
     Active Substance: GRANULOCYTE COLONY-STIMULATING FACTOR NOS
     Indication: GERM CELL NEOPLASM
     Dosage: UNK

REACTIONS (6)
  - Pyrexia [Recovered/Resolved]
  - Computerised tomogram thorax abnormal [Recovered/Resolved]
  - Pneumocystis jirovecii pneumonia [Recovered/Resolved]
  - Chest X-ray abnormal [Recovered/Resolved]
  - Dyspnoea [Recovered/Resolved]
  - Lymphocyte count abnormal [Recovered/Resolved]
